FAERS Safety Report 6369814-5 (Version None)
Quarter: 2009Q3

REPORT INFORMATION
  Report Type: 
  Country: None (occurrence: None)
  Receive Date: 20090918
  Receipt Date: 20090904
  Transmission Date: 20100115
  Serious: Yes (Life-Threatening, Hospitalization)
  Sender: FDA-Public Use
  Company Number: 20097258

PATIENT
  Sex: Female

DRUGS (1)
  1. LIORESAL [Suspect]
     Indication: MUSCLE SPASTICITY
     Dosage: MCG, DAILY, INTRATHECAL
     Route: 037

REACTIONS (4)
  - CYSTITIS [None]
  - MENINGITIS BACTERIAL [None]
  - POST PROCEDURAL COMPLICATION [None]
  - PSEUDOMONAS INFECTION [None]
